FAERS Safety Report 17579158 (Version 2)
Quarter: 2020Q2

REPORT INFORMATION
  Report Type: Spontaneous
  Country: US (occurrence: US)
  Receive Date: 20200325
  Receipt Date: 20200402
  Transmission Date: 20200713
  Serious: No
  Sender: FDA-Public Use
  Company Number: US-IPSEN BIOPHARMACEUTICALS, INC.-2020-05908

PATIENT
  Age: 51 Year
  Sex: Female

DRUGS (6)
  1. DYSPORT [Suspect]
     Active Substance: ABOBOTULINUMTOXINA
     Indication: SKIN WRINKLING
  2. DYSPORT [Suspect]
     Active Substance: ABOBOTULINUMTOXINA
     Indication: SKIN WRINKLING
     Dosage: 43 UNITS
     Route: 065
     Dates: start: 20191003, end: 20191003
  3. DYSPORT [Suspect]
     Active Substance: ABOBOTULINUMTOXINA
     Indication: SKIN WRINKLING
  4. JUVEDERM ULTRA [Suspect]
     Active Substance: HYALURONIC ACID
     Indication: PRODUCT USED FOR UNKNOWN INDICATION
     Dates: start: 20191105, end: 20191105
  5. BUPROPION. [Concomitant]
     Active Substance: BUPROPION
     Indication: DEPRESSION
     Route: 048
     Dates: start: 201901
  6. DYSPORT [Suspect]
     Active Substance: ABOBOTULINUMTOXINA
     Indication: OFF LABEL USE

REACTIONS (14)
  - Lip dry [Recovered/Resolved]
  - Brow ptosis [Recovered/Resolved]
  - Drug ineffective [Unknown]
  - Lip swelling [Recovered/Resolved]
  - Depression [Unknown]
  - Lip exfoliation [Recovered/Resolved]
  - Fatigue [Unknown]
  - Off label use [Unknown]
  - Chapped lips [Recovered/Resolved]
  - Emotional distress [Not Recovered/Not Resolved]
  - Eyelid ptosis [Recovered/Resolved]
  - Mass [Recovering/Resolving]
  - Skin discolouration [Unknown]
  - Malaise [Unknown]

NARRATIVE: CASE EVENT DATE: 20191005
